FAERS Safety Report 6376918-X (Version None)
Quarter: 2009Q3

REPORT INFORMATION
  Report Type: 
  Country: None (occurrence: None)
  Receive Date: 20090925
  Receipt Date: 20090918
  Transmission Date: 20100115
  Serious: Yes (Life-Threatening, Hospitalization, Other)
  Sender: FDA-Public Use
  Company Number: PL-ROCHE-657500

PATIENT
  Age: 54 Year
  Sex: Male

DRUGS (13)
  1. CYMEVENE [Suspect]
     Indication: CYTOMEGALOVIRUS INFECTION
     Route: 065
  2. MABTHERA [Suspect]
     Indication: APLASIA PURE RED CELL
     Dosage: RECEIVED A TOTAL OF THREE DOSES; TOTAL DOSE: 900 MG
     Route: 065
  3. NEORECORMON [Suspect]
     Indication: APLASIA PURE RED CELL
     Dosage: BETWEEN DAYS 151 AND 179
     Route: 058
  4. NEORECORMON [Suspect]
     Route: 058
  5. OVASTAT [Suspect]
     Indication: IMMUNOSUPPRESSION
     Dosage: DOSE: 25 G/M2; CONDITIONING
     Route: 065
  6. ENDOXAN [Suspect]
     Indication: IMMUNOSUPPRESSION
     Dosage: CONDITIONING
     Route: 065
  7. CYCLOSPORINE [Suspect]
     Indication: GRAFT VERSUS HOST DISEASE
     Dosage: DISCONTINUED ON DAY+90
     Route: 065
  8. MYLERAN [Concomitant]
     Indication: IMMUNOSUPPRESSION
     Dosage: NON MYELOABLATIVE CONDITIONING
  9. FLUDARA [Concomitant]
     Indication: IMMUNOSUPPRESSION
  10. ANTI-THYMOCYTE GLOBULIN NOS [Concomitant]
     Indication: IMMUNOSUPPRESSION
  11. SANDIMMUNE [Concomitant]
     Indication: PROPHYLAXIS AGAINST GRAFT VERSUS HOST DISEASE
     Dosage: TAPERED
  12. SANDIMMUNE [Concomitant]
     Dosage: ON DAY +90
  13. GAMMAGARD [Concomitant]
     Indication: PARVOVIRUS INFECTION
     Dosage: DOSE: 0.5 G/KG
     Route: 042

REACTIONS (7)
  - ANAEMIA [None]
  - BRONCHOPULMONARY ASPERGILLOSIS [None]
  - CYTOMEGALOVIRUS INFECTION [None]
  - DRUG INEFFECTIVE [None]
  - GRAFT LOSS [None]
  - PARVOVIRUS INFECTION [None]
  - SEPTIC SHOCK [None]
